FAERS Safety Report 19748745 (Version 1)
Quarter: 2021Q3

REPORT INFORMATION
  Report Type: Spontaneous
  Country: US (occurrence: US)
  Receive Date: 20210825
  Receipt Date: 20210825
  Transmission Date: 20211014
  Serious: Yes (Hospitalization)
  Sender: FDA-Public Use
  Company Number: None

PATIENT
  Age: 63 Year
  Sex: Female
  Weight: 52.62 kg

DRUGS (18)
  1. CRESTOR [Concomitant]
     Active Substance: ROSUVASTATIN CALCIUM
  2. PROCHLORPERAZINE MALEATE. [Concomitant]
     Active Substance: PROCHLORPERAZINE MALEATE
  3. TEMAZEPAM. [Concomitant]
     Active Substance: TEMAZEPAM
  4. MYCEL IMMUNE PLUS [Concomitant]
  5. FISH OIL BURP?LESS [Concomitant]
     Active Substance: FISH OIL
  6. MELOXICAM. [Concomitant]
     Active Substance: MELOXICAM
  7. PHOSPHATIDYLSERINE [Concomitant]
     Active Substance: PHOSPHATIDYL SERINE
  8. LEXAPRO [Concomitant]
     Active Substance: ESCITALOPRAM OXALATE
  9. LOMOTIL [Concomitant]
     Active Substance: ATROPINE SULFATE\DIPHENOXYLATE HYDROCHLORIDE
  10. MULTI?VIT/IRON/FLUORIDE [Concomitant]
  11. SULFASALAZINE. [Concomitant]
     Active Substance: SULFASALAZINE
  12. CAPECITABINE. [Suspect]
     Active Substance: CAPECITABINE
     Indication: BREAST CANCER
     Route: 048
     Dates: start: 20210113
  13. CALCIUM CARBONATE?VITAMIN D [Concomitant]
     Active Substance: CALCIUM CARBONATE\VITAMIN D
  14. GABAPENTIN. [Concomitant]
     Active Substance: GABAPENTIN
  15. FOLIC ACID. [Concomitant]
     Active Substance: FOLIC ACID
  16. MAGNESIUM [Concomitant]
     Active Substance: MAGNESIUM
  17. ONDANSETRON HCL [Concomitant]
     Active Substance: ONDANSETRON HYDROCHLORIDE
  18. POTASSIUM CHLORIDE ER [Concomitant]
     Active Substance: POTASSIUM CHLORIDE

REACTIONS (2)
  - Tremor [None]
  - Fall [None]

NARRATIVE: CASE EVENT DATE: 20210825
